FAERS Safety Report 7511666-1 (Version None)
Quarter: 2011Q2

REPORT INFORMATION
  Report Type: 
  Country: None (occurrence: None)
  Receive Date: 20110531
  Receipt Date: 20110510
  Transmission Date: 20111010
  Serious: No
  Sender: FDA-Public Use
  Company Number: US-B.I. PHARMACEUTICALS,INC./RIDGEFIELD-2011-BP-07395BP

PATIENT
  Age: 75 Year
  Sex: Male

DRUGS (5)
  1. SOTALOL HCL [Concomitant]
     Indication: ATRIAL FIBRILLATION
     Dosage: 160 MG
     Route: 048
  2. PRADAXA [Suspect]
     Indication: ATRIAL FIBRILLATION
     Dosage: 150 MG
     Route: 048
     Dates: start: 20110221
  3. PRADAXA [Suspect]
     Indication: CEREBROVASCULAR ACCIDENT PROPHYLAXIS
  4. SIMVASTATIN [Concomitant]
     Dosage: 20 MG
     Route: 048
  5. NISOLODIPINE [Concomitant]
     Dosage: 25.5 MG
     Route: 048

REACTIONS (4)
  - DIZZINESS [None]
  - HAEMATURIA [None]
  - DYSPEPSIA [None]
  - RENAL PAIN [None]
